FAERS Safety Report 20380640 (Version 1)
Quarter: 2022Q1

REPORT INFORMATION
  Report Type: Spontaneous
  Country: US (occurrence: US)
  Receive Date: 20220127
  Receipt Date: 20220127
  Transmission Date: 20220423
  Serious: No
  Sender: FDA-Public Use
  Company Number: US-CELGENE-USA-20220105299

PATIENT
  Age: 68 Year
  Sex: Male
  Weight: 89.892 kg

DRUGS (1)
  1. REVLIMID [Suspect]
     Active Substance: LENALIDOMIDE
     Indication: Plasma cell myeloma
     Dosage: 25 MILLIGRAM
     Route: 048
     Dates: start: 20200421

REACTIONS (2)
  - Oedema [Unknown]
  - Tremor [Unknown]

NARRATIVE: CASE EVENT DATE: 20200401
